FAERS Safety Report 7791721-1 (Version None)
Quarter: 2011Q4

REPORT INFORMATION
  Report Type: 
  Country: None (occurrence: None)
  Receive Date: 20111003
  Receipt Date: 20110920
  Transmission Date: 20120403
  Serious: Yes (Hospitalization)
  Sender: FDA-Public Use
  Company Number: US-BAYER-2011-052103

PATIENT
  Age: 48 Year
  Sex: Female
  Weight: 70.295 kg

DRUGS (2)
  1. YASMIN [Suspect]
     Dosage: UNK
     Dates: start: 20050101
  2. HERBAL SUPPLEMENTS [Concomitant]

REACTIONS (5)
  - THROMBOSIS [None]
  - DEEP VEIN THROMBOSIS [None]
  - PAIN [None]
  - INJURY [None]
  - PULMONARY EMBOLISM [None]
